FAERS Safety Report 5709968-4 (Version None)
Quarter: 2008Q2

REPORT INFORMATION
  Report Type: 
  Country: None (occurrence: None)
  Receive Date: 20080418
  Receipt Date: 20070725
  Transmission Date: 20081010
  Serious: No
  Sender: FDA-Public Use
  Company Number: US-ASTRAZENECA-2007UW14833

PATIENT
  Age: 64 Year
  Sex: Female
  Weight: 49 kg

DRUGS (8)
  1. TOPROL-XL [Suspect]
     Indication: HYPERTENSION
     Route: 048
     Dates: start: 20020101, end: 20040101
  2. TOPROL-XL [Suspect]
     Indication: MITRAL VALVE PROLAPSE
     Route: 048
     Dates: start: 20020101, end: 20040101
  3. TOPROL-XL [Suspect]
     Route: 048
  4. TOPROL-XL [Suspect]
     Route: 048
  5. TOPROL-XL [Suspect]
     Dosage: 1/4 TABL OF 25 MG QOD
     Route: 048
     Dates: start: 20070501
  6. TOPROL-XL [Suspect]
     Dosage: 1/4 TABL OF 25 MG QOD
     Route: 048
     Dates: start: 20070501
  7. PROPRANOLOL [Concomitant]
  8. DIOVAN [Concomitant]

REACTIONS (16)
  - BLOOD GLUCOSE INCREASED [None]
  - BLOOD PRESSURE FLUCTUATION [None]
  - DISCOMFORT [None]
  - DIZZINESS [None]
  - DRY EYE [None]
  - FATIGUE [None]
  - HEART RATE INCREASED [None]
  - ILL-DEFINED DISORDER [None]
  - INSOMNIA [None]
  - MALAISE [None]
  - MYALGIA [None]
  - PARAESTHESIA [None]
  - REBOUND EFFECT [None]
  - TACHYCARDIA [None]
  - TINNITUS [None]
  - TREMOR [None]
